FAERS Safety Report 5018390-8 (Version None)
Quarter: 2006Q2

REPORT INFORMATION
  Report Type: 
  Country: None (occurrence: None)
  Receive Date: 20060530
  Receipt Date: 20050728
  Transmission Date: 20061013
  Serious: Yes (Other)
  Sender: FDA-Public Use
  Company Number: 2005108326

PATIENT
  Age: 77 Year
  Sex: Male

DRUGS (10)
  1. LYRICA [Suspect]
     Indication: EPILEPSY
     Dosage: 150 MG (75 MG, 2 IN 1 D), ORAL
     Route: 048
     Dates: start: 20050510, end: 20050714
  2. PERINDOPRIL ERUMINE [Concomitant]
  3. SIMVASTATIN [Concomitant]
  4. LAMOTRIGINE [Concomitant]
  5. VALPROATE SODIUM [Concomitant]
  6. TOLTERODINE TARTRATE [Concomitant]
  7. ADCAL (CARBAZOCHROME) [Concomitant]
  8. ISPAGHULA HUSK [Concomitant]
  9. DOCUSATE SODIUM [Concomitant]
  10. MACROGOL [Concomitant]

REACTIONS (3)
  - COLONOSCOPY [None]
  - CONFUSIONAL STATE [None]
  - DISORIENTATION [None]
